FAERS Safety Report 7980636-1 (Version None)
Quarter: 2011Q4

REPORT INFORMATION
  Report Type: 
  Country: None (occurrence: None)
  Receive Date: 20111214
  Receipt Date: 20111212
  Transmission Date: 20120403
  Serious: Yes (Other)
  Sender: FDA-Public Use
  Company Number: US-PFIZER INC-2011302661

PATIENT
  Sex: Male
  Weight: 74.8 kg

DRUGS (2)
  1. PHENYTEK [Concomitant]
     Indication: EPILEPSY
     Dosage: 500 MG, 1X/DAY
     Route: 048
     Dates: start: 19980101
  2. DILANTIN [Suspect]
     Indication: EPILEPSY
     Dosage: UNK
     Route: 048
     Dates: start: 19980101, end: 19980101

REACTIONS (1)
  - FEELING DRUNK [None]
